FAERS Safety Report 9656287 (Version 1)
Quarter: 2013Q4

REPORT INFORMATION
  Report Type: Spontaneous
  Country: US (occurrence: US)
  Receive Date: 20131030
  Receipt Date: 20131030
  Transmission Date: 20140711
  Serious: No
  Sender: FDA-Public Use
  Company Number: US-PFIZER INC-2013307088

PATIENT
  Age: 80 Year
  Sex: Male
  Weight: 70.3 kg

DRUGS (3)
  1. SUTENT [Suspect]
     Indication: PANCREATIC NEUROENDOCRINE TUMOUR
     Dosage: 37.5 MG, ONCE A DAY
     Route: 048
     Dates: start: 201202
  2. DOXAZOSIN [Concomitant]
     Dosage: 8 MG, 1X/DAY
  3. TORSEMIDE [Concomitant]
     Indication: DIURETIC THERAPY
     Dosage: UNK

REACTIONS (6)
  - Wound [Recovered/Resolved]
  - Local swelling [Unknown]
  - Lymphorrhoea [Unknown]
  - Local swelling [Unknown]
  - Body height decreased [Unknown]
  - Impaired healing [Unknown]
